FAERS Safety Report 22251808 (Version 2)
Quarter: 2024Q2

REPORT INFORMATION
  Report Type: Report from Study
  Country: US (occurrence: US)
  Receive Date: 20230425
  Receipt Date: 20240508
  Transmission Date: 20240716
  Serious: No
  Sender: FDA-Public Use
  Company Number: US-INCYTE CORPORATION-2023IN002850

PATIENT

DRUGS (1)
  1. JAKAFI [Suspect]
     Active Substance: RUXOLITINIB
     Dosage: 10 MILLIGRAM, BID (TAKE1 TABLET TWICE A DAY)
     Route: 065

REACTIONS (2)
  - Product availability issue [Unknown]
  - Wrong technique in product usage process [Unknown]
